FAERS Safety Report 7867260-6 (Version None)
Quarter: 2011Q4

REPORT INFORMATION
  Report Type: 
  Country: None (occurrence: None)
  Receive Date: 20111028
  Receipt Date: 20111024
  Transmission Date: 20120403
  Serious: Yes (Hospitalization, Other)
  Sender: FDA-Public Use
  Company Number: US-TEVA-300182USA

PATIENT
  Sex: Female

DRUGS (2)
  1. METRONIDAZOLE [Suspect]
     Dosage: 500 MILLIGRAM; TOOK 2 DOSES
     Route: 048
     Dates: start: 20110825, end: 20110825
  2. LOSARTAN POTASSIUM [Suspect]
     Route: 048

REACTIONS (7)
  - MALAISE [None]
  - ABDOMINAL DISCOMFORT [None]
  - CEREBROVASCULAR ACCIDENT [None]
  - HYPERTENSIVE EMERGENCY [None]
  - FEELING ABNORMAL [None]
  - EUPHORIC MOOD [None]
  - CONVULSION [None]
